FAERS Safety Report 4501116-1 (Version None)
Quarter: 2004Q4

REPORT INFORMATION
  Report Type: 
  Country: None (occurrence: None)
  Receive Date: 20041109
  Receipt Date: 20041103
  Transmission Date: 20050328
  Serious: Yes (Other)
  Sender: FDA-Public Use
  Company Number: USA041082421

PATIENT
  Age: 13 Year
  Sex: Male
  Weight: 41 kg

DRUGS (2)
  1. STRATTERA [Suspect]
     Indication: IMPULSIVE BEHAVIOUR
     Dosage: 78 MG DAY
     Dates: start: 20030131
  2. DEPAKOTE [Concomitant]

REACTIONS (4)
  - ANTICONVULSANT DRUG LEVEL BELOW THERAPEUTIC [None]
  - CONVULSION [None]
  - EDUCATIONAL PROBLEM [None]
  - TREMOR [None]
